FAERS Safety Report 10054918 (Version 1)
Quarter: 2014Q2

REPORT INFORMATION
  Report Type: Report from Study
  Country: US (occurrence: US)
  Receive Date: 20140402
  Receipt Date: 20140402
  Transmission Date: 20141212
  Serious: Yes (Other)
  Sender: FDA-Public Use
  Company Number: US-ABBVIE-14P-163-1219212-00

PATIENT
  Sex: Female

DRUGS (2)
  1. LUPRON DEPOT [Suspect]
     Indication: PRODUCT USED FOR UNKNOWN INDICATION
     Dosage: MONTHLY
     Dates: start: 2004
  2. SYNTHROID [Suspect]
     Indication: PRODUCT USED FOR UNKNOWN INDICATION

REACTIONS (9)
  - Cyst [Unknown]
  - Endometriosis [Unknown]
  - Hot flush [Recovered/Resolved]
  - Mood swings [Recovered/Resolved]
  - Metrorrhagia [Unknown]
  - Hypothyroidism [Unknown]
  - Endometriosis [Recovered/Resolved]
  - Cyst [Unknown]
  - Endometriosis [Unknown]
